FAERS Safety Report 4683902-0 (Version None)
Quarter: 2005Q2

REPORT INFORMATION
  Report Type: 
  Country: None (occurrence: None)
  Receive Date: 20050607
  Receipt Date: 20050322
  Transmission Date: 20051028
  Serious: Yes (Life-Threatening, Hospitalization, Disabling)
  Sender: FDA-Public Use
  Company Number: US-MERCK-0503USA04065

PATIENT
  Age: 62 Year
  Sex: Male
  Weight: 123 kg

DRUGS (14)
  1. ZETIA [Suspect]
     Indication: HYPERCHOLESTEROLAEMIA
     Route: 048
     Dates: start: 20041209, end: 20050301
  2. LIPITOR [Suspect]
     Route: 065
     Dates: end: 20050301
  3. PAXIL [Concomitant]
     Route: 065
  4. XANAX [Concomitant]
     Route: 065
  5. GLYBURIDE [Concomitant]
     Route: 048
  6. SYNTHROID [Concomitant]
     Route: 065
  7. TRICOR [Concomitant]
     Route: 065
     Dates: start: 20031202, end: 20050301
  8. TOPROL-XL [Concomitant]
     Route: 048
  9. SPIRONOLACTONE [Concomitant]
     Route: 065
  10. FUROSEMIDE [Concomitant]
     Route: 065
  11. LISINOPRIL [Concomitant]
     Route: 065
     Dates: end: 20050301
  12. ATENOLOL [Concomitant]
     Route: 065
  13. AMBIEN [Concomitant]
     Route: 065
  14. XALATAN [Concomitant]
     Route: 065

REACTIONS (15)
  - COUGH [None]
  - DECREASED APPETITE [None]
  - DISSEMINATED INTRAVASCULAR COAGULATION [None]
  - GASTROOESOPHAGEAL REFLUX DISEASE [None]
  - HAEMOCHROMATOSIS [None]
  - HEPATIC FAILURE [None]
  - HEPATITIS ACUTE [None]
  - HEPATORENAL SYNDROME [None]
  - ISCHAEMIC HEPATITIS [None]
  - PEPTIC ULCER [None]
  - PROTHROMBIN TIME PROLONGED [None]
  - RENAL FAILURE ACUTE [None]
  - SINUS TACHYCARDIA [None]
  - THROMBOCYTOPENIA [None]
  - VIRAL INFECTION [None]
